FAERS Safety Report 5787909-1 (Version None)
Quarter: 2008Q2

REPORT INFORMATION
  Report Type: 
  Country: None (occurrence: None)
  Receive Date: 20080625
  Receipt Date: 20080623
  Transmission Date: 20081010
  Serious: Yes (Other)
  Sender: FDA-Public Use
  Company Number: A0733267A

PATIENT
  Age: 62 Year
  Sex: Female

DRUGS (5)
  1. WELLBUTRIN XL [Suspect]
     Indication: DEPRESSION
     Dosage: 150MG PER DAY
     Route: 048
     Dates: start: 20070605, end: 20080604
  2. FLONASE [Concomitant]
     Indication: DRUG USE FOR UNKNOWN INDICATION
  3. ALTACE [Concomitant]
  4. OXEZE [Concomitant]
  5. LYRICA [Concomitant]
     Dosage: 100MG AT NIGHT

REACTIONS (3)
  - ANXIETY [None]
  - ATRIAL FIBRILLATION [None]
  - HYPERTENSION [None]
